FAERS Safety Report 15051550 (Version 1)
Quarter: 2018Q2

REPORT INFORMATION
  Report Type: Report from Study
  Country: US (occurrence: US)
  Receive Date: 20180622
  Receipt Date: 20180622
  Transmission Date: 20180711
  Serious: Yes (Other)
  Sender: FDA-Public Use
  Company Number: US-JNJFOC-20180112591

PATIENT
  Age: 68 Year
  Sex: Female

DRUGS (12)
  1. PEPCID [Concomitant]
     Active Substance: FAMOTIDINE
  2. BENADRYL [Concomitant]
     Active Substance: DIPHENHYDRAMINE HYDROCHLORIDE
  3. METOPROLOL. [Concomitant]
     Active Substance: METOPROLOL
  4. IBUPROFEN. [Concomitant]
     Active Substance: IBUPROFEN
  5. LISINOPRIL. [Concomitant]
     Active Substance: LISINOPRIL
  6. LOPERAMIDE [Concomitant]
     Active Substance: LOPERAMIDE
  7. IMBRUVICA [Suspect]
     Active Substance: IBRUTINIB
     Indication: CHRONIC LYMPHOCYTIC LEUKAEMIA RECURRENT
     Route: 048
     Dates: start: 20151103, end: 20180426
  8. TRAMADOL. [Concomitant]
     Active Substance: TRAMADOL
  9. CITRACAL [Concomitant]
     Active Substance: CALCIUM CITRATE
  10. LORAZEPAM. [Concomitant]
     Active Substance: LORAZEPAM
  11. IMBRUVICA [Suspect]
     Active Substance: IBRUTINIB
     Indication: CHRONIC LYMPHOCYTIC LEUKAEMIA RECURRENT
     Route: 048
     Dates: start: 20150601
  12. HYDROCHLOROTH [Concomitant]
     Active Substance: HYDROCHLOROTHIAZIDE

REACTIONS (2)
  - Influenza [Unknown]
  - Cholecystitis [Unknown]

NARRATIVE: CASE EVENT DATE: 201702
